FAERS Safety Report 8070498-9 (Version None)
Quarter: 2012Q1

REPORT INFORMATION
  Report Type: 
  Country: None (occurrence: None)
  Receive Date: 20120125
  Receipt Date: 20120118
  Transmission Date: 20120608
  Serious: Yes (Hospitalization)
  Sender: FDA-Public Use
  Company Number: DK-GLAXOSMITHKLINE-B0691457A

PATIENT
  Sex: Female
  Weight: 90 kg

DRUGS (5)
  1. KIVEXA [Suspect]
     Indication: HIV INFECTION
     Route: 065
     Dates: start: 20100816
  2. ALLI [Suspect]
     Indication: WEIGHT DECREASED
     Dosage: 120MG PER DAY
     Route: 048
     Dates: start: 20101011, end: 20101111
  3. EFAVIRENZ [Suspect]
     Indication: HIV INFECTION
     Dosage: 600MG PER DAY
     Route: 065
     Dates: start: 20100816
  4. DIETARY SUPPLEMENT [Suspect]
     Indication: PRODUCT USED FOR UNKNOWN INDICATION
     Route: 065
  5. HERBAL MEDICATION [Suspect]
     Indication: PHYTOTHERAPY
     Dosage: 1680MG PER DAY
     Route: 048
     Dates: start: 20101011, end: 20101111

REACTIONS (10)
  - DIZZINESS [None]
  - OVERDOSE [None]
  - BLOOD URINE PRESENT [None]
  - DRUG INTERACTION [None]
  - VOMITING [None]
  - URINE ABNORMALITY [None]
  - NAUSEA [None]
  - HEADACHE [None]
  - ANAEMIA HAEMOLYTIC AUTOIMMUNE [None]
  - CHROMATURIA [None]
